FAERS Safety Report 7401734-7 (Version None)
Quarter: 2011Q1

REPORT INFORMATION
  Report Type: 
  Country: None (occurrence: None)
  Receive Date: 20110329
  Receipt Date: 20110316
  Transmission Date: 20110831
  Serious: Yes (Hospitalization)
  Sender: FDA-Public Use
  Company Number: 2011SP012409

PATIENT
  Age: 14 Year
  Sex: Male

DRUGS (4)
  1. DOLIPRANE(PARACETAMOL /00020001/) [Suspect]
     Indication: PRODUCT USED FOR UNKNOWN INDICATION
     Dosage: 8000 MG;ONCE;PO
     Route: 048
     Dates: start: 20101206, end: 20101206
  2. DAFALGAN (PARACETAMOL /00020001/) [Suspect]
     Indication: PRODUCT USED FOR UNKNOWN INDICATION
     Dosage: 1 DF;ONCE;PO
     Route: 048
     Dates: start: 20101206, end: 20101206
  3. EFFERALGAN CODEINE (PANADEINE CO) [Suspect]
     Indication: PRODUCT USED FOR UNKNOWN INDICATION
     Dosage: 4 DF;ONCE;PO
     Route: 048
     Dates: start: 20101206, end: 20101206
  4. AERIUS (DESLORATADINE /01398501/) [Suspect]
     Indication: PRODUCT USED FOR UNKNOWN INDICATION
     Dosage: 7 DF;ONCE;PO
     Route: 048
     Dates: start: 20101206, end: 20101206

REACTIONS (5)
  - ANALGESIC DRUG LEVEL INCREASED [None]
  - SUICIDE ATTEMPT [None]
  - SOMNOLENCE [None]
  - BLOOD CREATININE INCREASED [None]
  - INCORRECT DOSE ADMINISTERED [None]
